FAERS Safety Report 19646792 (Version 1)
Quarter: 2021Q3

REPORT INFORMATION
  Report Type: Spontaneous
  Country: US (occurrence: US)
  Receive Date: 20210802
  Receipt Date: 20210802
  Transmission Date: 20211014
  Serious: Yes (Other)
  Sender: FDA-Public Use
  Company Number: None

PATIENT
  Age: 31 Year
  Sex: Female
  Weight: 54 kg

DRUGS (1)
  1. TOBRADEX [Suspect]
     Active Substance: DEXAMETHASONE\TOBRAMYCIN
     Indication: DRUG THERAPY
     Route: 047
     Dates: start: 20210408, end: 20210410

REACTIONS (2)
  - Pain [None]
  - Hypersensitivity [None]

NARRATIVE: CASE EVENT DATE: 20210410
